FAERS Safety Report 20971140 (Version 3)
Quarter: 2022Q3

REPORT INFORMATION
  Report Type: Spontaneous
  Country: US (occurrence: US)
  Receive Date: 20220616
  Receipt Date: 20220713
  Transmission Date: 20221027
  Serious: No
  Sender: FDA-Public Use
  Company Number: US-SA-SAC20220613001125

PATIENT
  Age: 42 Year
  Sex: Female

DRUGS (10)
  1. DUPIXENT [Suspect]
     Active Substance: DUPILUMAB
     Indication: Chronic rhinosinusitis with nasal polyps
     Route: 065
  2. DUPIXENT [Suspect]
     Active Substance: DUPILUMAB
     Indication: Chronic rhinosinusitis with nasal polyps
     Dosage: 300 MG, QOW
     Route: 058
  3. CLARITIN [Concomitant]
     Active Substance: LORATADINE
  4. TYLENOL [Concomitant]
     Active Substance: ACETAMINOPHEN
  5. VENLAFAXINE HCL [Concomitant]
     Active Substance: VENLAFAXINE HYDROCHLORIDE
  6. CEPHALEXIN [Concomitant]
     Active Substance: CEPHALEXIN
  7. PREDNISONE [Concomitant]
     Active Substance: PREDNISONE
     Indication: Rhinitis allergic
  8. DOXYCYCLINE HYCLATE [Concomitant]
     Active Substance: DOXYCYCLINE HYCLATE
  9. MONTELUKAST SODIUM [Concomitant]
     Active Substance: MONTELUKAST SODIUM
  10. PROBIOTIC ACIDOPHILUS XTRA [Concomitant]

REACTIONS (3)
  - Injection site pain [Unknown]
  - Skin reaction [Unknown]
  - Product use in unapproved indication [Unknown]
